FAERS Safety Report 8364591-0 (Version None)
Quarter: 2012Q2

REPORT INFORMATION
  Report Type: 
  Country: None (occurrence: None)
  Receive Date: 20120516
  Receipt Date: 20120511
  Transmission Date: 20120825
  Serious: Yes (Life-Threatening)
  Sender: FDA-Public Use
  Company Number: US-ASTRAZENECA-2012SE30465

PATIENT
  Sex: Male

DRUGS (11)
  1. NEXIUM [Suspect]
     Indication: GASTROOESOPHAGEAL REFLUX DISEASE
     Route: 048
  2. WELCHOL [Suspect]
     Indication: GASTROINTESTINAL DISORDER
     Route: 065
  3. ADVAIR DISKUS 100/50 [Suspect]
     Indication: CHRONIC OBSTRUCTIVE PULMONARY DISEASE
     Dosage: 250/50
     Route: 065
  4. LASIX [Suspect]
     Indication: CARDIAC DISORDER
     Route: 065
  5. SPIRIVA [Suspect]
     Indication: CHRONIC OBSTRUCTIVE PULMONARY DISEASE
     Route: 065
  6. VERAPAMIL [Suspect]
     Route: 065
  7. TOPROL-XL [Suspect]
     Indication: CARDIAC DISORDER
     Route: 048
  8. NITROSTAT [Suspect]
     Indication: CARDIAC DISORDER
     Route: 065
  9. COUMADIN [Suspect]
     Indication: CARDIAC DISORDER
     Route: 065
  10. TOVIAZ [Suspect]
     Indication: BLADDER DISORDER
     Route: 065
  11. DIGOXIN [Suspect]
     Indication: CARDIAC DISORDER
     Route: 065

REACTIONS (1)
  - MULTI-ORGAN FAILURE [None]
